FAERS Safety Report 11504044 (Version 12)
Quarter: 2018Q2

REPORT INFORMATION
  Report Type: Report from Study
  Country: BR (occurrence: BR)
  Receive Date: 20150914
  Receipt Date: 20180406
  Transmission Date: 20180711
  Serious: Yes (Death, Hospitalization, Other)
  Sender: FDA-Public Use
  Company Number: PHHY2015BR104865

PATIENT
  Age: 75 Year
  Sex: Female
  Weight: 50 kg

DRUGS (10)
  1. HYDRALAZINE [Concomitant]
     Active Substance: HYDRALAZINE HYDROCHLORIDE
     Indication: HYPERTENSION
     Dosage: 1 DF, QD
     Route: 048
  2. AMLODIPINE [Concomitant]
     Active Substance: AMLODIPINE BESYLATE
     Indication: HYPERTENSION
     Dosage: 2 DF, QD
     Route: 048
  3. NIFEDIPINE. [Concomitant]
     Active Substance: NIFEDIPINE
     Indication: HYPERTENSION
     Dosage: 2 DF, QD
     Route: 048
  4. CLONIDINE. [Concomitant]
     Active Substance: CLONIDINE
     Indication: HYPERTENSION
     Dosage: UNK
     Route: 048
  5. METFORMIN [Concomitant]
     Active Substance: METFORMIN HYDROCHLORIDE
     Indication: DIABETES MELLITUS
     Dosage: 2 DF, QD
     Route: 048
     Dates: start: 2010
  6. OMEPRAZOLE. [Concomitant]
     Active Substance: OMEPRAZOLE
     Indication: GASTRITIS EROSIVE
     Dosage: 1 DF, QD
     Route: 048
  7. ASA [Concomitant]
     Active Substance: ASPIRIN
     Indication: CARDIAC DISORDER
     Dosage: 100 MG, QD
     Route: 048
     Dates: start: 2010
  8. SANDOSTATIN LAR DEPOT [Suspect]
     Active Substance: OCTREOTIDE ACETATE
     Indication: NEUROENDOCRINE TUMOUR
     Dosage: 1 DF, QMO
     Route: 030
     Dates: end: 20180228
  9. ATENOLOL. [Concomitant]
     Active Substance: ATENOLOL
     Indication: HYPERTENSION
     Dosage: 2 DF, QD
     Route: 048
  10. HYDROCHLOROTHIAZIDE. [Concomitant]
     Active Substance: HYDROCHLOROTHIAZIDE
     Indication: HYPERTENSION
     Dosage: 1 DF, QD
     Route: 048

REACTIONS (49)
  - Seizure [Recovering/Resolving]
  - Haemorrhagic stroke [Recovering/Resolving]
  - Recurrent cancer [Not Recovered/Not Resolved]
  - Hemiplegia [Recovering/Resolving]
  - Malignant neoplasm progression [Unknown]
  - Scratch [Unknown]
  - Pain [Unknown]
  - Burning sensation [Recovered/Resolved]
  - Poor peripheral circulation [Unknown]
  - Senile dementia [Fatal]
  - Blood pressure increased [Recovering/Resolving]
  - Hepatic function abnormal [Recovered/Resolved]
  - Hypersensitivity [Unknown]
  - Diarrhoea [Recovered/Resolved]
  - Asthenia [Recovering/Resolving]
  - Tumour pain [Unknown]
  - Metastases to central nervous system [Recovering/Resolving]
  - Disturbance in attention [Unknown]
  - Wound [Unknown]
  - Sleep disorder [Recovered/Resolved]
  - Nausea [Unknown]
  - Dysgeusia [Unknown]
  - Rash [Unknown]
  - Endocrine neoplasm malignant [Fatal]
  - Erythema [Recovered/Resolved]
  - Peripheral vascular disorder [Unknown]
  - Abdominal pain [Unknown]
  - Drug ineffective [Unknown]
  - Blood creatinine increased [Unknown]
  - Malaise [Recovered/Resolved]
  - Restlessness [Unknown]
  - Abdominal distension [Recovered/Resolved]
  - Urinary tract infection [Fatal]
  - Abdominal adhesions [Unknown]
  - Abdominal discomfort [Recovered/Resolved]
  - Confusional state [Unknown]
  - Disorientation [Unknown]
  - Laziness [Unknown]
  - Malaise [Recovered/Resolved]
  - Swelling [Unknown]
  - Blood cholesterol increased [Unknown]
  - Weight increased [Recovering/Resolving]
  - Vomiting [Recovered/Resolved]
  - Pruritus [Unknown]
  - Rash papular [Unknown]
  - Hypoaesthesia [Unknown]
  - Peripheral swelling [Unknown]
  - Concomitant disease aggravated [Unknown]
  - Joint swelling [Recovered/Resolved]

NARRATIVE: CASE EVENT DATE: 2011
